FAERS Safety Report 11082447 (Version 1)
Quarter: 2015Q2

REPORT INFORMATION
  Report Type: Spontaneous
  Country: US (occurrence: US)
  Receive Date: 20150501
  Receipt Date: 20150501
  Transmission Date: 20150821
  Serious: No
  Sender: FDA-Public Use
  Company Number: US-TEVA-556169USA

PATIENT
  Sex: Female
  Weight: 77.18 kg

DRUGS (1)
  1. PROVIGIL [Suspect]
     Active Substance: MODAFINIL
     Indication: NARCOLEPSY
     Dosage: 100 MILLIGRAM DAILY;
     Route: 048
     Dates: start: 2012

REACTIONS (5)
  - Insomnia [Unknown]
  - Nightmare [Unknown]
  - Restlessness [Unknown]
  - Wrong technique in drug usage process [Unknown]
  - Product substitution issue [Unknown]

NARRATIVE: CASE EVENT DATE: 2012
